FAERS Safety Report 7645825-4 (Version None)
Quarter: 2011Q3

REPORT INFORMATION
  Report Type: 
  Country: None (occurrence: None)
  Receive Date: 20110729
  Receipt Date: 20110715
  Transmission Date: 20111222
  Serious: Yes (Hospitalization)
  Sender: FDA-Public Use
  Company Number: US-ARROW GEN-2011-11141

PATIENT
  Age: 51 Year
  Sex: Female

DRUGS (1)
  1. CIPROFLOXACIN HCL [Suspect]
     Indication: EVIDENCE BASED TREATMENT
     Dosage: UNK

REACTIONS (2)
  - PNEUMATOSIS INTESTINALIS [None]
  - CLOSTRIDIUM DIFFICILE COLITIS [None]
